FAERS Safety Report 25830964 (Version 1)
Quarter: 2025Q3

REPORT INFORMATION
  Report Type: Spontaneous
  Country: US (occurrence: None)
  Receive Date: 20250920
  Receipt Date: 20250920
  Transmission Date: 20251021
  Serious: No
  Sender: FDA-CTU
  Company Number: None

PATIENT
  Age: 73 Year
  Sex: Female
  Weight: 46.35 kg

DRUGS (14)
  1. FINASTERIDE [Suspect]
     Active Substance: FINASTERIDE
     Indication: Alopecia
     Dosage: 1 TABLET DAILY ORAL ?
     Route: 048
     Dates: start: 20250904, end: 20250914
  2. Brimonidine Tartrate .15% eye drops [Concomitant]
  3. AZELASTINE HYDROCHLORIDE [Concomitant]
     Active Substance: AZELASTINE HYDROCHLORIDE
  4. Fluticasone proprionate nasal spray [Concomitant]
  5. DILTIAZEM [Concomitant]
     Active Substance: DILTIAZEM
  6. ESTRADIOL [Concomitant]
     Active Substance: ESTRADIOL
  7. MYRBETRIQ [Concomitant]
     Active Substance: MIRABEGRON
  8. RALOXIFENE [Concomitant]
     Active Substance: RALOXIFENE
  9. ROSUVASTATIN [Concomitant]
     Active Substance: ROSUVASTATIN
  10. RESTASIS [Concomitant]
     Active Substance: CYCLOSPORINE
  11. ALLEGRA [Concomitant]
     Active Substance: FEXOFENADINE HYDROCHLORIDE
  12. Bone Up [Concomitant]
  13. B12 1000 mcg [Concomitant]
  14. D3 1000 IU [Concomitant]

REACTIONS (1)
  - Dry eye [None]

NARRATIVE: CASE EVENT DATE: 20250915
